FAERS Safety Report 10901059 (Version 1)
Quarter: 2015Q1

REPORT INFORMATION
  Report Type: Report from Study
  Country: US (occurrence: None)
  Receive Date: 20150303
  Receipt Date: 20150303
  Transmission Date: 20150721
  Serious: Yes (Hospitalization)
  Sender: FDA-Public Use
  Company Number: US-001737

PATIENT
  Age: 61 Year
  Sex: Female

DRUGS (1)
  1. GATTEX [Suspect]
     Active Substance: TEDUGLUTIDE\WATER
     Indication: SHORT-BOWEL SYNDROME
     Dosage: DF FULL DOSE SUBCUTANEOUS
     Route: 058
     Dates: start: 20140709, end: 2015

REACTIONS (4)
  - Drug dose omission [None]
  - Drug administration error [None]
  - Diarrhoea [None]
  - Epilepsy [None]

NARRATIVE: CASE EVENT DATE: 201501
